FAERS Safety Report 10920254 (Version 1)
Quarter: 2015Q1

REPORT INFORMATION
  Report Type: Spontaneous
  Country: US (occurrence: None)
  Receive Date: 20150312
  Receipt Date: 20150312
  Transmission Date: 20150721
  Serious: Yes (Other)
  Sender: FDA-Public Use
  Company Number: None

PATIENT
  Age: 31 Year
  Sex: Female

DRUGS (1)
  1. HUMIRA [Suspect]
     Active Substance: ADALIMUMAB
     Indication: CROHN^S DISEASE
     Dosage: INJECTABLE
     Route: 058
     Dates: start: 20150224

REACTIONS (3)
  - Arthralgia [None]
  - Acne [None]
  - Pigmentation lip [None]

NARRATIVE: CASE EVENT DATE: 20150227
